FAERS Safety Report 17791805 (Version 2)
Quarter: 2020Q2

REPORT INFORMATION
  Report Type: Report from Study
  Country: CH (occurrence: CH)
  Receive Date: 20200515
  Receipt Date: 20200602
  Transmission Date: 20200714
  Serious: Yes (Life-Threatening, Hospitalization, Other)
  Sender: FDA-Public Use
  Company Number: CH-ROCHE-2570415

PATIENT
  Age: 80 Year
  Sex: Female
  Weight: 68.5 kg

DRUGS (14)
  1. G-CSF [Concomitant]
     Active Substance: GRANULOCYTE COLONY-STIMULATING FACTOR NOS
  2. SPIRONOLACTONE. [Concomitant]
     Active Substance: SPIRONOLACTONE
  3. NEBIVOLOL. [Concomitant]
     Active Substance: NEBIVOLOL
  4. ATEZOLIZUMAB. [Suspect]
     Active Substance: ATEZOLIZUMAB
     Indication: PLEURAL MESOTHELIOMA MALIGNANT
     Route: 041
     Dates: start: 20200304, end: 20200406
  5. LEVOFLOXACIN. [Concomitant]
     Active Substance: LEVOFLOXACIN
  6. LEVOCETIRIZINE [Concomitant]
     Active Substance: LEVOCETIRIZINE
  7. BEVACIZUMAB. [Suspect]
     Active Substance: BEVACIZUMAB
     Indication: PLEURAL MESOTHELIOMA MALIGNANT
     Route: 042
     Dates: start: 20200304, end: 20200304
  8. PEMETREXED. [Suspect]
     Active Substance: PEMETREXED
     Indication: PLEURAL MESOTHELIOMA MALIGNANT
     Dosage: PEMETREXED - DATE OF LAST ADMINISTRATION BEFORE SAE: 04/MAR/2020
     Route: 042
     Dates: start: 20200304
  9. CARBOPLATIN. [Suspect]
     Active Substance: CARBOPLATIN
     Indication: PLEURAL MESOTHELIOMA MALIGNANT
     Dosage: DATE OF LAST ADMINISTRATION BEFORE SAE: 04/MAR/2020
     Route: 042
     Dates: start: 20200304
  10. MEROPENEM. [Concomitant]
     Active Substance: MEROPENEM
  11. CLOBETASOL PROPIONATE. [Concomitant]
     Active Substance: CLOBETASOL PROPIONATE
  12. CLOBETASOL [Concomitant]
     Active Substance: CLOBETASOL
  13. PIPERACILLIN AND TAZOBACTAM [Concomitant]
     Active Substance: PIPERACILLIN SODIUM\TAZOBACTAM SODIUM
  14. PERINDOPRIL [Concomitant]
     Active Substance: PERINDOPRIL

REACTIONS (4)
  - Platelet count decreased [Recovered/Resolved]
  - Neutrophil count decreased [Recovered/Resolved]
  - Aspartate aminotransferase increased [Recovered/Resolved]
  - Acute kidney injury [Recovered/Resolved]

NARRATIVE: CASE EVENT DATE: 20200316
